FAERS Safety Report 8486067-2 (Version None)
Quarter: 2012Q3

REPORT INFORMATION
  Report Type: 
  Country: None (occurrence: None)
  Receive Date: 20120703
  Receipt Date: 20120618
  Transmission Date: 20120928
  Serious: Yes (Hospitalization)
  Sender: FDA-Public Use
  Company Number: GB-WATSON-2012-10723

PATIENT
  Age: 15 Year
  Sex: Female

DRUGS (3)
  1. LAMOTRIGINE [Suspect]
     Indication: EPILEPSY
     Dosage: 25 MG, BID
     Route: 048
     Dates: end: 20120520
  2. VALPROATE SODIUM [Concomitant]
     Indication: EPILEPSY
     Dosage: INCREASED FROM 200 MG TWICE A DAY TO 800 MG TWICE A DAY (THIS WAS DONE GRADUALLY)
  3. LAMOTRIGINE [Suspect]
     Dosage: 25 MG, DAILY
     Route: 048
     Dates: start: 20120521, end: 20120601

REACTIONS (6)
  - RASH [None]
  - ORAL DISORDER [None]
  - PLATELET COUNT DECREASED [None]
  - PYREXIA [None]
  - STEVENS-JOHNSON SYNDROME [None]
  - CONJUNCTIVAL DISORDER [None]
